FAERS Safety Report 6810847-X (Version None)
Quarter: 2010Q2

REPORT INFORMATION
  Report Type: 
  Country: None (occurrence: None)
  Receive Date: 20100630
  Receipt Date: 20080401
  Transmission Date: 20101027
  Serious: No
  Sender: FDA-Public Use
  Company Number: US-PFIZER INC-2008014393

PATIENT
  Sex: Female

DRUGS (2)
  1. ESTRING [Suspect]
     Indication: ATROPHIC VULVOVAGINITIS
     Route: 067
     Dates: start: 20061101
  2. PROTONIX [Concomitant]
     Indication: OESOPHAGITIS

REACTIONS (2)
  - VAGINAL INFECTION [None]
  - VULVOVAGINAL PAIN [None]
